FAERS Safety Report 8551680-0 (Version None)
Quarter: 2012Q3

REPORT INFORMATION
  Report Type: 
  Country: None (occurrence: None)
  Receive Date: 20120723
  Receipt Date: 20120723
  Transmission Date: 20120928
  Serious: No
  Sender: FDA-Public Use
  Company Number: None

PATIENT
  Age: 15 Year
  Sex: Male
  Weight: 67 kg

DRUGS (3)
  1. .. [Concomitant]
  2. QUETIAPINE [Concomitant]
  3. CARBAMAZEPINE [Suspect]
     Dosage: 100 MG BID PO
     Route: 048

REACTIONS (7)
  - LUNG INFILTRATION [None]
  - RASH [None]
  - CONDITION AGGRAVATED [None]
  - COUGH [None]
  - HYPOXIA [None]
  - PYREXIA [None]
  - RESPIRATORY DISTRESS [None]
